FAERS Safety Report 24109905 (Version 2)
Quarter: 2024Q3

REPORT INFORMATION
  Report Type: Spontaneous
  Country: US (occurrence: US)
  Receive Date: 20240718
  Receipt Date: 20240801
  Transmission Date: 20241016
  Serious: No
  Sender: FRESENIUS KABI
  Company Number: US-FreseniusKabi-FK202410519

PATIENT
  Age: 34 Year
  Sex: Male
  Weight: 158 kg

DRUGS (1)
  1. HEPARIN SODIUM IN DEXTROSE [Suspect]
     Active Substance: HEPARIN SODIUM
     Indication: Anticoagulant therapy
     Dosage: FORM OF ADMIN: INJECTION, 25000 UNITS/250 ML BAG?3200 UNITS PER HOUR
     Route: 042
     Dates: start: 20240625, end: 20240628

REACTIONS (1)
  - Drug ineffective [Unknown]

NARRATIVE: CASE EVENT DATE: 20240625
